FAERS Safety Report 13817140 (Version 2)
Quarter: 2017Q3

REPORT INFORMATION
  Report Type: Report from Study
  Country: US (occurrence: US)
  Receive Date: 20170731
  Receipt Date: 20170810
  Transmission Date: 20171127
  Serious: Yes (Hospitalization)
  Sender: FDA-Public Use
  Company Number: US-VIFOR (INTERNATIONAL) INC.-VIT-2017-08010

PATIENT
  Sex: Female
  Weight: 108.96 kg

DRUGS (3)
  1. VELTASSA [Suspect]
     Active Substance: PATIROMER
     Route: 048
     Dates: start: 2017
  2. VELTASSA [Suspect]
     Active Substance: PATIROMER
     Indication: BLOOD POTASSIUM INCREASED
     Route: 048
     Dates: start: 2016, end: 201707
  3. MORPHINE [Suspect]
     Active Substance: MORPHINE
     Indication: BACK PAIN

REACTIONS (7)
  - Back pain [Unknown]
  - Hallucination [Unknown]
  - Dehydration [Unknown]
  - Renal impairment [Unknown]
  - Hypotension [Unknown]
  - Cardiac arrest [Unknown]
  - Nephrolithiasis [Unknown]
